FAERS Safety Report 9161226 (Version 1)
Quarter: 2013Q1

REPORT INFORMATION
  Report Type: Spontaneous
  Country: GB (occurrence: GB)
  Receive Date: 20130313
  Receipt Date: 20130313
  Transmission Date: 20140127
  Serious: Yes (Other)
  Sender: FDA-Public Use
  Company Number: GB-009507513-1303GBR005308

PATIENT
  Age: 67 Year
  Sex: Male
  Weight: 99.78 kg

DRUGS (4)
  1. NASONEX [Suspect]
     Dosage: 50 MICROGRAM
     Route: 045
     Dates: end: 201301
  2. AMLODIPINE [Suspect]
     Indication: BLOOD PRESSURE
     Dosage: 5 MG
     Route: 048
     Dates: start: 20120101
  3. SIMVASTATIN [Suspect]
     Indication: BLOOD CHOLESTEROL INCREASED
     Dosage: 20 MG
     Route: 048
     Dates: start: 20121026, end: 20121207
  4. RAMIPRIL [Concomitant]
     Dosage: UNK
     Dates: start: 20121026, end: 20121120

REACTIONS (5)
  - Cough [Unknown]
  - Chest pain [Recovered/Resolved with Sequelae]
  - Drug interaction [Unknown]
  - Myalgia [Recovered/Resolved with Sequelae]
  - Flank pain [Unknown]
